FAERS Safety Report 7657494-8 (Version None)
Quarter: 2011Q3

REPORT INFORMATION
  Report Type: 
  Country: None (occurrence: None)
  Receive Date: 20110804
  Receipt Date: 20110803
  Transmission Date: 20111222
  Serious: Yes (Death, Hospitalization, Disabling)
  Sender: FDA-Public Use
  Company Number: FR-TEVA-267946ISR

PATIENT
  Sex: Female
  Weight: 66.3 kg

DRUGS (8)
  1. DEXAMETHASONE [Suspect]
     Dates: start: 20110104, end: 20110112
  2. PREVISCAN [Concomitant]
     Indication: THROMBOSIS PROPHYLAXIS
  3. PREVISCAN [Concomitant]
     Indication: ARRHYTHMIA
  4. CIPRALAN [Concomitant]
     Indication: ATRIAL FIBRILLATION
  5. DEXAMETHASONE [Suspect]
     Indication: MULTIPLE MYELOMA
     Dates: start: 20101207
  6. LENALIDOMIDE [Suspect]
     Route: 048
     Dates: start: 20110104, end: 20110112
  7. LENALIDOMIDE [Suspect]
     Indication: MULTIPLE MYELOMA
     Route: 048
     Dates: start: 20101207
  8. PREVISCAN [Concomitant]
     Indication: ATRIAL FIBRILLATION
     Route: 048
     Dates: start: 20090101

REACTIONS (5)
  - DIABETES MELLITUS [None]
  - EUPHORIC MOOD [None]
  - STAPHYLOCOCCAL SEPSIS [None]
  - REPETITIVE SPEECH [None]
  - PNEUMONIA STAPHYLOCOCCAL [None]
